FAERS Safety Report 9356831 (Version 1)
Quarter: 2013Q2

REPORT INFORMATION
  Report Type: Spontaneous
  Country: US (occurrence: US)
  Receive Date: 20130620
  Receipt Date: 20130620
  Transmission Date: 20140414
  Serious: No
  Sender: FDA-Public Use
  Company Number: US-009507513-1306USA008840

PATIENT
  Sex: Female

DRUGS (1)
  1. MEVACOR TABLET [Suspect]
     Route: 048

REACTIONS (5)
  - Drug hypersensitivity [Unknown]
  - Muscle spasms [Unknown]
  - Cough [Unknown]
  - Throat tightness [Unknown]
  - Chest discomfort [Unknown]
